FAERS Safety Report 8737911 (Version 2)
Quarter: 2013Q4

REPORT INFORMATION
  Report Type: Spontaneous
  Country: US (occurrence: US)
  Receive Date: 20120823
  Receipt Date: 20131101
  Transmission Date: 20140711
  Serious: No
  Sender: FDA-Public Use
  Company Number: US-009507513-1207USA008410

PATIENT
  Sex: 0
  Weight: 58.5 kg

DRUGS (1)
  1. NEXPLANON [Suspect]
     Dosage: 3 YEAR IMPLANT
     Route: 059
     Dates: start: 20120718

REACTIONS (2)
  - Device difficult to use [Unknown]
  - No adverse event [Unknown]
